FAERS Safety Report 8058465-2 (Version None)
Quarter: 2012Q1

REPORT INFORMATION
  Report Type: 
  Country: None (occurrence: None)
  Receive Date: 20120120
  Receipt Date: 20120119
  Transmission Date: 20120608
  Serious: Yes (Death)
  Sender: FDA-Public Use
  Company Number: IL-PFIZER INC-2012014876

PATIENT
  Sex: Male

DRUGS (2)
  1. AFINITOR [Concomitant]
     Dosage: 10 MG, 1X/DAY
  2. SUTENT [Suspect]
     Indication: RENAL CELL CARCINOMA

REACTIONS (1)
  - CARDIAC DISORDER [None]
